FAERS Safety Report 19282719 (Version 3)
Quarter: 2021Q2

REPORT INFORMATION
  Report Type: Spontaneous
  Country: US (occurrence: US)
  Receive Date: 20210521
  Receipt Date: 20210628
  Transmission Date: 20210717
  Serious: Yes (Hospitalization)
  Sender: FDA-Public Use
  Company Number: US-ROCHE-2832829

PATIENT
  Age: 46 Year
  Sex: Female

DRUGS (2)
  1. GAVRETO [Suspect]
     Active Substance: PRALSETINIB
     Indication: THYROID CANCER
     Dosage: TAKE 4 CAPSULES (400 MG TOTAL) BY MOUTH DAILY
     Route: 048
     Dates: start: 20210406
  2. GAVRETO [Suspect]
     Active Substance: PRALSETINIB
     Route: 048
     Dates: start: 20210407

REACTIONS (5)
  - Pneumonia [Unknown]
  - Candida infection [Unknown]
  - Myalgia [Unknown]
  - COVID-19 [Unknown]
  - Migraine [Not Recovered/Not Resolved]

NARRATIVE: CASE EVENT DATE: 20210501
